FAERS Safety Report 15011294 (Version 1)
Quarter: 2018Q2

REPORT INFORMATION
  Report Type: Spontaneous
  Country: HU (occurrence: HU)
  Receive Date: 20180614
  Receipt Date: 20180614
  Transmission Date: 20180711
  Serious: Yes (Death, Hospitalization, Other)
  Sender: FDA-Public Use
  Company Number: HU-PFIZER INC-2018169058

PATIENT
  Age: 55 Year
  Sex: Female

DRUGS (2)
  1. EXEMESTANE. [Suspect]
     Active Substance: EXEMESTANE
     Indication: METASTASIS
     Dosage: UNK
     Route: 065
     Dates: start: 201703
  2. AFINITOR [Suspect]
     Active Substance: EVEROLIMUS
     Indication: METASTASIS
     Dosage: UNK
     Route: 065
     Dates: start: 201703

REACTIONS (4)
  - Pulmonary oedema [Unknown]
  - Pyrexia [Unknown]
  - Neoplasm progression [Unknown]
  - Pneumonia [Fatal]
